FAERS Safety Report 8808446 (Version 3)
Quarter: 2012Q4

REPORT INFORMATION
  Report Type: 
  Country: US (occurrence: US)
  Receive Date: 20120926
  Receipt Date: 20121016
  Transmission Date: 20130627
  Serious: No
  Sender: FDA-Public Use
  Company Number: US-PFIZER INC-2012233381

PATIENT
  Age: 8 Year
  Sex: Female

DRUGS (2)
  1. GENOTROPIN [Suspect]
     Indication: PRADER-WILLI SYNDROME
     Dosage: 0.8 mg, daily
  2. CHILDRENS CHEWABLE VITAMINS [Concomitant]
     Dosage: UNK

REACTIONS (1)
  - Injection site pain [Unknown]
